FAERS Safety Report 25074364 (Version 2)
Quarter: 2025Q1

REPORT INFORMATION
  Report Type: Spontaneous
  Country: ES (occurrence: ES)
  Receive Date: 20250313
  Receipt Date: 20250317
  Transmission Date: 20250409
  Serious: Yes (Hospitalization, Other)
  Sender: EXELIXIS
  Company Number: ES-IPSEN Group, Research and Development-2025-05207

PATIENT
  Age: 70 Year
  Sex: Male

DRUGS (10)
  1. CABOMETYX [Suspect]
     Active Substance: CABOZANTINIB S-MALATE
     Indication: Clear cell renal cell carcinoma
     Dosage: 60 MG, QD
     Route: 048
  2. CABOMETYX [Suspect]
     Active Substance: CABOZANTINIB S-MALATE
     Dosage: 40 MG, QD
     Route: 048
  3. CABOMETYX [Suspect]
     Active Substance: CABOZANTINIB S-MALATE
     Dosage: 20 MG, QD
     Route: 048
  4. OMEPRAZOLE [Concomitant]
     Active Substance: OMEPRAZOLE
     Dosage: 20 MG, 1-0-0
  5. ATORVASTATIN [Concomitant]
     Active Substance: ATORVASTATIN
     Dosage: 20 MG, 0-0-1
  6. ALLOPURINOL [Concomitant]
     Active Substance: ALLOPURINOL
     Dosage: 100 MG, 0-1-0
  7. TAMSULOSIN/SOLIFENACIN [Concomitant]
  8. FERROUS SULFATE ANHYDROUS [Concomitant]
     Active Substance: FERROUS SULFATE ANHYDROUS
     Dosage: 105 MG 1-0-0
  9. FOLIC ACID [Concomitant]
     Active Substance: FOLIC ACID
  10. PARICALCITOL [Concomitant]
     Active Substance: PARICALCITOL
     Dosage: 1 MCG 1-0-0 THURSDAY AND SUNDAY

REACTIONS (11)
  - Peritonitis [Unknown]
  - Chronic kidney disease [Unknown]
  - Malignant neoplasm progression [Unknown]
  - Eczema eyelids [Recovering/Resolving]
  - Anal inflammation [Unknown]
  - Erythema [Recovering/Resolving]
  - Dermatitis acneiform [Recovering/Resolving]
  - Stomatitis [Unknown]
  - Rash [Unknown]
  - Proteinuria [Unknown]
  - Asthenia [Unknown]
